FAERS Safety Report 18122042 (Version 1)
Quarter: 2020Q3

REPORT INFORMATION
  Report Type: Spontaneous
  Country: US (occurrence: US)
  Receive Date: 20200807
  Receipt Date: 20200807
  Transmission Date: 20201103
  Serious: Yes (Other)
  Sender: FDA-Public Use
  Company Number: US-SA-2020SA200252

PATIENT

DRUGS (1)
  1. LANTUS [Suspect]
     Active Substance: INSULIN GLARGINE
     Indication: TYPE 2 DIABETES MELLITUS
     Dosage: 18 IU, QD (EVERY EVENING)
     Route: 065
     Dates: start: 2018

REACTIONS (6)
  - Fall [Unknown]
  - Road traffic accident [Unknown]
  - Wrong technique in device usage process [Unknown]
  - Wound [Unknown]
  - Hip fracture [Unknown]
  - Contusion [Unknown]

NARRATIVE: CASE EVENT DATE: 202004
